FAERS Safety Report 4902947-6 (Version None)
Quarter: 2006Q1

REPORT INFORMATION
  Report Type: 
  Country: None (occurrence: None)
  Receive Date: 20060207
  Receipt Date: 20060117
  Transmission Date: 20060701
  Serious: Yes (Death, Hospitalization)
  Sender: FDA-Public Use
  Company Number: US-BRISTOL-MYERS SQUIBB COMPANY-13250741

PATIENT
  Age: 76 Year
  Sex: Female
  Weight: 92 kg

DRUGS (16)
  1. IXABEPILONE [Suspect]
     Indication: BREAST CANCER METASTATIC
     Dosage: ADMIN. D 1, 8, 15 IV OVER 1 HOUR EVERY 21 DAYS/FIRST TX: 21-OCT-05/TOT.DOSE THIS COURSE = 30.15 MG.
     Route: 042
     Dates: start: 20051028, end: 20051028
  2. CARBOPLATIN [Suspect]
     Indication: BREAST CANCER METASTATIC
     Dosage: AUC DOSE OF 2 ADMINISTERED OVER 1 HOUR/INITIAL TX DATE: 21-OCT-05/TOTAL DOSE THIS COURSE = 203 MG.
     Route: 042
     Dates: start: 20051028, end: 20051028
  3. TRASTUZUMAB [Suspect]
     Indication: BREAST CANCER METASTATIC
     Dosage: 4 MG/KG IV INF. OVER 90 MINS DAY 1/F/B 2 MG/KG IV INF. OVER 30 MIN. WKLY X 23 WKS/INITIAL: 21-OCT-05
     Route: 041
     Dates: start: 20051028, end: 20051028
  4. ADVAIR DISKUS 100/50 [Concomitant]
  5. ASPIRIN [Concomitant]
  6. ATENOLOL [Concomitant]
  7. ATORVASTATIN CALCIUM [Concomitant]
  8. CALCIUM GLUCONATE [Concomitant]
  9. DARVOCET [Concomitant]
  10. DILTIAZEM HCL [Concomitant]
  11. IRON SUPPLEMENT [Concomitant]
  12. LASIX [Concomitant]
  13. LISINOPRIL [Concomitant]
  14. OXYBUTYNIN [Concomitant]
  15. REGLAN [Concomitant]
  16. ZOLOFT [Concomitant]

REACTIONS (6)
  - DEATH [None]
  - DIARRHOEA [None]
  - DIZZINESS [None]
  - NEUTROPHIL COUNT DECREASED [None]
  - PLATELET COUNT DECREASED [None]
  - WHITE BLOOD CELL COUNT DECREASED [None]
